FAERS Safety Report 17825494 (Version 2)
Quarter: 2020Q2

REPORT INFORMATION
  Report Type: Report from Study
  Country: GR (occurrence: GR)
  Receive Date: 20200526
  Receipt Date: 20200602
  Transmission Date: 20200714
  Serious: Yes (Death, Life-Threatening, Hospitalization, Other)
  Sender: FDA-Public Use
  Company Number: GR-AMGEN-GRCCT2020083656

PATIENT
  Age: 59 Year
  Sex: Male
  Weight: 80 kg

DRUGS (12)
  1. PANITUMUMAB [Suspect]
     Active Substance: PANITUMUMAB
     Indication: COLORECTAL CANCER METASTATIC
     Dosage: 480 MILLIGRAM (6 MG/KG)
     Route: 042
     Dates: start: 20191224, end: 20191224
  2. MEDROL [Concomitant]
     Active Substance: METHYLPREDNISOLONE
     Indication: PERICARDITIS
     Dosage: 16 MILLIGRAM, QD
     Route: 048
     Dates: start: 20191227, end: 20191230
  3. MEDROL [Concomitant]
     Active Substance: METHYLPREDNISOLONE
     Indication: PERICARDIAL EFFUSION
     Dosage: 48 MILLIGRAM, TID
     Route: 048
     Dates: start: 20191231, end: 20200102
  4. LASIX [Concomitant]
     Active Substance: FUROSEMIDE
     Indication: POLYURIA
     Dosage: 10 MILLIGRAM, QD
  5. LASIX [Concomitant]
     Active Substance: FUROSEMIDE
     Dosage: 20 MILLIGRAM, AS NECESSARY
     Route: 042
  6. MINOCIN [Concomitant]
     Active Substance: MINOCYCLINE HYDROCHLORIDE
     Indication: PROPHYLAXIS
     Dosage: 100 MILLIGRAM, QD
     Route: 048
     Dates: start: 20191227, end: 20191230
  7. LEUCOVORIN [FOLINIC ACID] [Suspect]
     Active Substance: LEUCOVORIN
     Indication: COLORECTAL CANCER METASTATIC
     Dosage: 780 MILLIGRAM (400 MG/M2), Q2WK
     Route: 042
     Dates: start: 20191224, end: 20191224
  8. FLUOROURACIL. [Suspect]
     Active Substance: FLUOROURACIL
     Indication: COLORECTAL CANCER METASTATIC
     Dosage: 3110 MILLIGRAM (400 MG/M2 AND 2400 MG/M2)
     Route: 042
     Dates: start: 20191224, end: 20191226
  9. COZAAR [Concomitant]
     Active Substance: LOSARTAN POTASSIUM
     Indication: HYPERTENSION
     Dosage: 100 MILLIGRAM, QD
     Route: 048
     Dates: end: 20191230
  10. LASIX [Concomitant]
     Active Substance: FUROSEMIDE
     Indication: PROPHYLAXIS
     Dosage: 40 MILLIGRAM, QD
     Route: 048
     Dates: end: 20191230
  11. IRICAN [Suspect]
     Active Substance: IRINOTECAN HYDROCHLORIDE
     Indication: COLORECTAL CANCER METASTATIC
     Dosage: 350 MILLIGRAM (180 MG/M2), Q2WK
     Route: 042
     Dates: start: 20191224, end: 20191224
  12. LASIX [Concomitant]
     Active Substance: FUROSEMIDE
     Indication: PLEURAL EFFUSION
     Dosage: 20 MILLIGRAM, BID
     Dates: start: 20191231, end: 20200102

REACTIONS (3)
  - Pericardial effusion [Not Recovered/Not Resolved]
  - Hepatic failure [Fatal]
  - Pleural effusion [Not Recovered/Not Resolved]

NARRATIVE: CASE EVENT DATE: 20191230
